FAERS Safety Report 15768607 (Version 1)
Quarter: 2018Q4

REPORT INFORMATION
  Report Type: Spontaneous
  Country: US (occurrence: US)
  Receive Date: 20181227
  Receipt Date: 20181227
  Transmission Date: 20190205
  Serious: Yes (Hospitalization, Other)
  Sender: FDA-Public Use
  Company Number: US-JNJFOC-20181222231

PATIENT
  Sex: Female

DRUGS (1)
  1. BABY POWDER [Suspect]
     Active Substance: ZINC OXIDE
     Indication: PRODUCT USED FOR UNKNOWN INDICATION
     Dosage: FREQUENCY: AS OFTEN AS SHE COULD
     Route: 048
     Dates: start: 2007, end: 2007

REACTIONS (3)
  - Intentional product use issue [Unknown]
  - Uterine leiomyoma [Recovered/Resolved]
  - Exposure via ingestion [Unknown]

NARRATIVE: CASE EVENT DATE: 2007
